FAERS Safety Report 6608737-0 (Version None)
Quarter: 2010Q1

REPORT INFORMATION
  Report Type: 
  Country: None (occurrence: None)
  Receive Date: 20100301
  Receipt Date: 20100218
  Transmission Date: 20100710
  Serious: Yes (Hospitalization)
  Sender: FDA-Public Use
  Company Number: FI-JNJFOC-20070600100

PATIENT
  Age: 3 Year
  Sex: Female

DRUGS (14)
  1. REMICADE [Suspect]
     Indication: JUVENILE ARTHRITIS
     Route: 042
  2. REMICADE [Suspect]
     Route: 042
  3. REMICADE [Suspect]
     Route: 042
  4. REMICADE [Suspect]
     Route: 042
  5. REMICADE [Suspect]
     Route: 042
  6. METHOTREXATE [Concomitant]
  7. FOLIC ACID [Concomitant]
  8. PREDNISOLONE [Concomitant]
  9. HYDROCORTISONE [Concomitant]
  10. VITAMIN D [Concomitant]
  11. CALCIUM [Concomitant]
  12. PARACETAMOL [Concomitant]
     Indication: PREMEDICATION
  13. CETIRIZINE HCL [Concomitant]
     Indication: PREMEDICATION
  14. METHYLPREDNISOLONE [Concomitant]
     Indication: PREMEDICATION

REACTIONS (5)
  - COUGH [None]
  - EAR INFECTION [None]
  - INFUSION RELATED REACTION [None]
  - RHINORRHOEA [None]
  - URTICARIA [None]
